FAERS Safety Report 21527222 (Version 1)
Quarter: 2022Q4

REPORT INFORMATION
  Report Type: Report from Study
  Country: BR (occurrence: BR)
  Receive Date: 20221031
  Receipt Date: 20221031
  Transmission Date: 20230113
  Serious: Yes (Other)
  Sender: FDA-Public Use
  Company Number: BR-JNJFOC-20221053840

PATIENT
  Age: 5 Decade
  Sex: Male
  Weight: 78 kg

DRUGS (1)
  1. REMICADE [Suspect]
     Active Substance: INFLIXIMAB
     Indication: Crohn^s disease
     Route: 041
     Dates: start: 202203

REACTIONS (6)
  - Haemorrhage [Unknown]
  - Hypersensitivity [Recovered/Resolved]
  - Candida infection [Unknown]
  - Urinary tract infection [Unknown]
  - Pain [Unknown]
  - Herpes virus infection [Unknown]
